FAERS Safety Report 10079188 (Version 2)
Quarter: 2014Q2

REPORT INFORMATION
  Report Type: Spontaneous
  Country: HU (occurrence: HU)
  Receive Date: 20140415
  Receipt Date: 20140415
  Transmission Date: 20141212
  Serious: Yes (Hospitalization)
  Sender: FDA-Public Use
  Company Number: HU-ELI_LILLY_AND_COMPANY-HU201403000143

PATIENT
  Age: 32 Year
  Sex: Male

DRUGS (1)
  1. ZYPADHERA [Suspect]
     Indication: SCHIZOPHRENIA, PARANOID TYPE
     Dosage: 405 MG, MONTHLY (1/M)
     Route: 030
     Dates: start: 201008

REACTIONS (6)
  - Schizophrenia, paranoid type [Recovering/Resolving]
  - Psychotic behaviour [Recovering/Resolving]
  - Aggression [Recovering/Resolving]
  - Drug ineffective [Recovering/Resolving]
  - Abnormal behaviour [Recovering/Resolving]
  - Injection site nodule [Unknown]
